FAERS Safety Report 16839115 (Version 1)
Quarter: 2019Q3

REPORT INFORMATION
  Report Type: Spontaneous
  Country: US (occurrence: US)
  Receive Date: 20190731
  Receipt Date: 20190731
  Transmission Date: 20191005
  Serious: Yes (Life-Threatening, Hospitalization)
  Sender: FDA-Public Use
  Company Number: None

PATIENT
  Age: 56 Year
  Sex: Male

DRUGS (1)
  1. MELOXICAM. [Suspect]
     Active Substance: MELOXICAM
     Indication: PAIN
     Route: 048
     Dates: start: 20181227, end: 20190717

REACTIONS (4)
  - Occult blood positive [None]
  - Gastric haemorrhage [None]
  - Faeces discoloured [None]
  - Refusal of treatment by patient [None]

NARRATIVE: CASE EVENT DATE: 20190501
